FAERS Safety Report 9194538 (Version 1)
Quarter: 2013Q1

REPORT INFORMATION
  Report Type: Spontaneous
  Country: US (occurrence: US)
  Receive Date: 20130327
  Receipt Date: 20130327
  Transmission Date: 20140127
  Serious: No
  Sender: FDA-Public Use
  Company Number: US-ALLERGAN-1206009US

PATIENT
  Age: 71 Year
  Sex: Female

DRUGS (4)
  1. LATISSE 0.03% [Suspect]
     Indication: HYPOTRICHOSIS
     Dosage: 2 GTT, QHS
     Route: 061
     Dates: start: 201112
  2. ARTIFICIAL TEARS                   /00445101/ [Concomitant]
     Indication: DRY EYE
     Dosage: UNK
     Route: 047
  3. ARTIFICIAL TEARS                   /00445101/ [Concomitant]
     Indication: CONTACT LENS THERAPY
  4. CALCIUM SUPPLEMENT [Concomitant]
     Indication: PRODUCT USED FOR UNKNOWN INDICATION

REACTIONS (2)
  - Wrong technique in drug usage process [Unknown]
  - Hair growth abnormal [Not Recovered/Not Resolved]
